FAERS Safety Report 4440021-6 (Version None)
Quarter: 2004Q3

REPORT INFORMATION
  Report Type: 
  Country: None (occurrence: None)
  Receive Date: 20040901
  Receipt Date: 20040818
  Transmission Date: 20050211
  Serious: Yes (Life-Threatening, Hospitalization)
  Sender: FDA-Public Use
  Company Number: 04-00480

PATIENT
  Age: 73 Year
  Sex: Female

DRUGS (1)
  1. METFORMIN HYDROCHLORIDE [Suspect]
     Dosage: 1000MG, TWICE A DAY

REACTIONS (16)
  - BLOOD BICARBONATE DECREASED [None]
  - BLOOD CREATININE INCREASED [None]
  - BLOOD UREA INCREASED [None]
  - CARDIO-RESPIRATORY ARREST [None]
  - COAGULOPATHY [None]
  - DRUG LEVEL ABOVE THERAPEUTIC [None]
  - EPISTAXIS [None]
  - FATIGUE [None]
  - GINGIVAL BLEEDING [None]
  - HAEMATOCRIT DECREASED [None]
  - HAEMATURIA [None]
  - HAEMODIALYSIS [None]
  - INTERNATIONAL NORMALISED RATIO INCREASED [None]
  - METABOLIC ACIDOSIS [None]
  - OBSTRUCTIVE UROPATHY [None]
  - RETROPERITONEAL HAEMATOMA [None]
